FAERS Safety Report 12878159 (Version 1)
Quarter: 2016Q4

REPORT INFORMATION
  Report Type: Spontaneous
  Country: MX (occurrence: MX)
  Receive Date: 20161024
  Receipt Date: 20161024
  Transmission Date: 20170207
  Serious: Yes (Other)
  Sender: FDA-Public Use
  Company Number: ALCN2016MX006983

PATIENT
  Age: 50 Year
  Sex: Female

DRUGS (2)
  1. NEVANAC [Suspect]
     Active Substance: NEPAFENAC
     Indication: POSTOPERATIVE CARE
     Dosage: 1 DF, QID
     Route: 047
  2. VIGAMOXI [Suspect]
     Active Substance: MOXIFLOXACIN
     Indication: POSTOPERATIVE CARE
     Dosage: 1 DF, QID
     Route: 047

REACTIONS (9)
  - Corneal thinning [Recovered/Resolved]
  - Ulcerative keratitis [Recovered/Resolved]
  - Eye pain [Recovered/Resolved]
  - Vision blurred [Recovered/Resolved]
  - Incorrect drug administration duration [Unknown]
  - Eye discharge [Recovered/Resolved]
  - Corneal perforation [Recovered/Resolved]
  - Iridocele [Recovered/Resolved]
  - Ocular hyperaemia [Recovered/Resolved]
